FAERS Safety Report 18346792 (Version 2)
Quarter: 2020Q4

REPORT INFORMATION
  Report Type: Spontaneous
  Country: US (occurrence: US)
  Receive Date: 20201006
  Receipt Date: 20201006
  Transmission Date: 20210114
  Serious: Yes (Other)
  Sender: FDA-Public Use
  Company Number: US-GLENMARK PHARMACEUTICALS-2020GMK049880

PATIENT
  Age: 45 Year
  Sex: Female

DRUGS (5)
  1. FLUTICASONE PROPIONATE. [Interacting]
     Active Substance: FLUTICASONE PROPIONATE
     Dosage: 4 DOSAGE FORM, QD (TWO SPRAYS IN EACH NOSTRIL ONCE DAILY)
     Route: 045
  2. DARUNAVIR [Interacting]
     Active Substance: DARUNAVIR
     Indication: HIV INFECTION
     Dosage: 800 MILLIGRAM, OD
     Route: 048
     Dates: start: 1996
  3. RALTEGRAVIR. [Concomitant]
     Active Substance: RALTEGRAVIR
     Indication: HIV INFECTION
     Dosage: 400 MILLIGRAM, BID
     Route: 048
     Dates: start: 1996
  4. RITONAVIR. [Interacting]
     Active Substance: RITONAVIR
     Indication: HIV INFECTION
     Dosage: 10 MILLIGRAM, BID
     Route: 048
     Dates: start: 1996
  5. FLUTICASONE PROPIONATE. [Suspect]
     Active Substance: FLUTICASONE PROPIONATE
     Indication: PRODUCT USED FOR UNKNOWN INDICATION
     Dosage: 1 DOSAGE FORM, BID (ONE PUFF TWICE DAILY)

REACTIONS (5)
  - Cushing^s syndrome [Recovered/Resolved]
  - Drug interaction [Unknown]
  - Adrenal insufficiency [Recovered/Resolved]
  - Osteonecrosis [Unknown]
  - Hypercalcaemia [Recovered/Resolved]
